FAERS Safety Report 8616719-2 (Version None)
Quarter: 2012Q3

REPORT INFORMATION
  Report Type: 
  Country: None (occurrence: None)
  Receive Date: 20120823
  Receipt Date: 20120817
  Transmission Date: 20120928
  Serious: Yes (Other)
  Sender: FDA-Public Use
  Company Number: JP-009507513-2012SP027853

PATIENT

DRUGS (11)
  1. PEGINTERFERON ALFA-2B [Suspect]
     Indication: HEPATITIS C
     Dosage: 1.18 ?G/KG, QW
     Route: 058
     Dates: start: 20120206, end: 20120215
  2. REBETOL [Suspect]
     Dosage: 200 MG, QD
     Route: 048
     Dates: start: 20120406
  3. REBETOL [Suspect]
     Dosage: 400 MG, QD
     Route: 048
     Dates: start: 20120412, end: 20120723
  4. TELAVIC [Suspect]
     Dosage: 500 MG, QD
     Route: 048
     Dates: start: 20120406, end: 20120531
  5. VOLTAREN [Concomitant]
     Indication: PROPHYLAXIS
     Dosage: AS NEEDED
     Route: 054
     Dates: start: 20120206, end: 20120215
  6. MEFENAMIC ACID [Concomitant]
     Indication: PYREXIA
     Dosage: FORMULATION-POR
     Route: 048
     Dates: start: 20120427
  7. REBETOL [Suspect]
     Indication: HEPATITIS C
     Dosage: 400 MG, QD
     Route: 048
     Dates: start: 20120206, end: 20120215
  8. PEGINTERFERON ALFA-2B [Suspect]
     Dosage: 0.5 ?G/KG, QW
     Route: 058
     Dates: start: 20120406, end: 20120723
  9. SELBEX [Concomitant]
     Dosage: FORMULATION: POR
     Route: 048
     Dates: end: 20120723
  10. TELAVIC [Suspect]
     Indication: HEPATITIS C
     Dosage: 2250 MG, QD
     Route: 048
     Dates: start: 20120206, end: 20120215
  11. VOLTAREN-XR [Concomitant]
     Dosage: FORMULATION: POR
     Route: 048
     Dates: end: 20120723

REACTIONS (1)
  - PLATELET COUNT DECREASED [None]
